FAERS Safety Report 4269691-2 (Version None)
Quarter: 2004Q1

REPORT INFORMATION
  Report Type: 
  Country: None (occurrence: None)
  Receive Date: 20040112
  Receipt Date: 20031231
  Transmission Date: 20041129
  Serious: Yes (Hospitalization)
  Sender: FDA-Public Use
  Company Number: 04P-087-0246148-00

PATIENT

DRUGS (1)
  1. TRICOR [Suspect]
     Indication: HYPERLIPIDAEMIA
     Dosage: ORAL
     Route: 048
     Dates: end: 20030801

REACTIONS (4)
  - ASTHENIA [None]
  - LIVER ABSCESS [None]
  - PYREXIA [None]
  - RHABDOMYOLYSIS [None]
